FAERS Safety Report 4541830-5 (Version None)
Quarter: 2004Q4

REPORT INFORMATION
  Report Type: 
  Country: None (occurrence: None)
  Receive Date: 20041230
  Receipt Date: 20041202
  Transmission Date: 20050328
  Serious: Yes (Other)
  Sender: FDA-Public Use
  Company Number: PHEH2004US12894

PATIENT
  Age: 73 Year
  Sex: Female
  Weight: 53 kg

DRUGS (11)
  1. MIACALCIN [Suspect]
     Indication: OSTEOPOROSIS
     Dosage: 200 IU, QD
     Dates: start: 20030501
  2. MIACALCIN [Suspect]
     Dates: end: 20000101
  3. COUMADIN [Concomitant]
  4. ARIMIDEX [Concomitant]
  5. SYNTHROID [Concomitant]
  6. FERROUS SULFATE TAB [Concomitant]
     Dosage: 650 MG, UNK
  7. CALCIUM [Concomitant]
  8. DITROPAN [Concomitant]
     Dosage: 5 MG, QD
  9. ACETAMINOPHEN [Concomitant]
  10. PREVACID [Concomitant]
     Dosage: 20 UNK, QD
  11. VITAMIN B12 FOR INJECTION [Concomitant]

REACTIONS (11)
  - BODY HEIGHT DECREASED [None]
  - BREAST CANCER [None]
  - DERMATITIS [None]
  - DIARRHOEA [None]
  - DRUG INEFFECTIVE [None]
  - GASTROENTERITIS [None]
  - GASTROENTERITIS VIRAL [None]
  - MASTECTOMY [None]
  - NAUSEA [None]
  - VOMITING [None]
  - WEIGHT DECREASED [None]
